FAERS Safety Report 22821923 (Version 4)
Quarter: 2023Q4

REPORT INFORMATION
  Report Type: Spontaneous
  Country: JP (occurrence: JP)
  Receive Date: 20230814
  Receipt Date: 20231201
  Transmission Date: 20240110
  Serious: Yes (Death, Hospitalization)
  Sender: FDA-Public Use
  Company Number: JP-BAYER-2023A111290

PATIENT
  Age: 78 Year
  Sex: Male

DRUGS (6)
  1. NUBEQA [Suspect]
     Active Substance: DAROLUTAMIDE
     Indication: Hormone-dependent prostate cancer
     Dosage: DAILY DOSE 1200 MG
     Route: 048
     Dates: start: 20230531, end: 20230808
  2. DOCETAXEL [Suspect]
     Active Substance: DOCETAXEL\DOCETAXEL ANHYDROUS
     Indication: Hormone-dependent prostate cancer
     Dosage: DAILY DOSE 75 MG/M2
     Route: 042
     Dates: start: 20230530, end: 20230619
  3. DOCETAXEL [Suspect]
     Active Substance: DOCETAXEL\DOCETAXEL ANHYDROUS
     Indication: White blood cell count abnormal
     Dosage: DAILY DOSE 60 MG/M2(3RD COURSE)
     Route: 042
     Dates: start: 20230801, end: 20230801
  4. DOCETAXEL [Suspect]
     Active Substance: DOCETAXEL\DOCETAXEL ANHYDROUS
     Indication: Hormone-dependent prostate cancer
     Dosage: DAILY DOSE 60 MG/M2
     Route: 042
     Dates: start: 20230627, end: 20230816
  5. PEGFILGRASTIM [Suspect]
     Active Substance: PEGFILGRASTIM
     Indication: Prophylactic chemotherapy
     Dosage: IN THE 1ST COURSE OF THERAPY
     Dates: start: 20230601
  6. FILGRASTIM [Concomitant]
     Active Substance: FILGRASTIM
     Indication: Neutrophil count decreased
     Dosage: IN THE 2ND COURSE OF THERAPY
     Dates: start: 20230702

REACTIONS (6)
  - Interstitial lung disease [Fatal]
  - Pyrexia [Fatal]
  - Oxygen saturation decreased [None]
  - Neutrophil count abnormal [Recovered/Resolved]
  - Pyrexia [Recovering/Resolving]
  - White blood cell count abnormal [None]

NARRATIVE: CASE EVENT DATE: 20230101
